FAERS Safety Report 4759609-8 (Version None)
Quarter: 2005Q3

REPORT INFORMATION
  Report Type: 
  Country: None (occurrence: None)
  Receive Date: 20050831
  Receipt Date: 20050820
  Transmission Date: 20060218
  Serious: Yes (Other)
  Sender: FDA-Public Use
  Company Number: 2005118238

PATIENT
  Sex: Male
  Weight: 111.5849 kg

DRUGS (11)
  1. VIAGRA [Suspect]
     Indication: ERECTILE DYSFUNCTION
     Dosage: 50 MG (50 MG, AS NECESSARY), ORAL
     Route: 048
  2. NORVASC [Concomitant]
  3. NEXIUM [Concomitant]
  4. MAVIK [Concomitant]
  5. HYDROCHLOROTHIAZIDE [Concomitant]
  6. BUSPAR [Concomitant]
  7. LEXAPRO (ESCITALOPAM) [Concomitant]
  8. BENICAR [Concomitant]
  9. ZOCOR [Concomitant]
  10. CALCIUM (CALCIUM) [Concomitant]
  11. ACETYLSALICYLIC ACID SRT [Concomitant]

REACTIONS (2)
  - PHOTOPHOBIA [None]
  - PROSTATIC OPERATION [None]
